FAERS Safety Report 9619828 (Version 2)
Quarter: 2013Q4

REPORT INFORMATION
  Report Type: Report from Study
  Country: JP (occurrence: JP)
  Receive Date: 20131014
  Receipt Date: 20131014
  Transmission Date: 20140711
  Serious: Yes (Hospitalization, Other)
  Sender: FDA-Public Use
  Company Number: JP-SA-THYM-1001009

PATIENT
  Age: 38 Year
  Sex: Male
  Weight: 58 kg

DRUGS (26)
  1. THYMOGLOBULINE [Suspect]
     Indication: BONE MARROW CONDITIONING REGIMEN
     Dosage: 145 MG, QD
     Route: 042
     Dates: start: 20090313, end: 20090316
  2. LOXONIN [Concomitant]
     Indication: PROPHYLAXIS
     Dosage: 60 MG, UNK
     Dates: start: 20090313, end: 20090316
  3. ATARAX-P [Concomitant]
     Indication: PROPHYLAXIS
     Dosage: 25 MG, UNK
     Dates: start: 20090313, end: 20090316
  4. ATARAX-P [Concomitant]
     Indication: PROPHYLAXIS
     Dosage: 50 MG, UNK
     Dates: start: 20090313, end: 20090316
  5. CYCLOPHOSPHAMIDE [Concomitant]
     Indication: APLASTIC ANAEMIA
     Dosage: 3100 MG, QD
     Dates: start: 20090313, end: 20090316
  6. MEROPEN [Concomitant]
     Indication: PNEUMONIA
     Dosage: .5 G, QID
     Dates: start: 20081231
  7. MEROPEN [Concomitant]
     Indication: INFECTION PROPHYLAXIS
     Dosage: .5 G, QID
     Dates: start: 20081231
  8. MEROPEN [Concomitant]
     Indication: PNEUMONIA
     Dosage: UNK
     Dates: start: 20090313, end: 20090329
  9. MEROPEN [Concomitant]
     Indication: INFECTION PROPHYLAXIS
     Dosage: UNK
     Dates: start: 20090313, end: 20090329
  10. METHYLPREDNISOLONE [Concomitant]
     Indication: ALLERGY PROPHYLAXIS
     Dosage: 120 MG, UNK
     Dates: end: 20090407
  11. METHYLPREDNISOLONE [Concomitant]
     Indication: ALLERGY PROPHYLAXIS
     Dosage: 250 MG, BID
     Dates: start: 20090313, end: 20090316
  12. METHYLPREDNISOLONE [Concomitant]
     Indication: ALLERGY PROPHYLAXIS
     Dosage: 125 MG, BID
     Dates: start: 20090317, end: 20090317
  13. METHYLPREDNISOLONE [Concomitant]
     Indication: ALLERGY PROPHYLAXIS
     Dosage: 125 MG, QD
     Dates: start: 20090318, end: 20090318
  14. METHYLPREDNISOLONE [Concomitant]
     Indication: ALLERGY PROPHYLAXIS
     Dosage: 80 MG, UNK
     Dates: start: 20090319, end: 20090321
  15. METHYLPREDNISOLONE [Concomitant]
     Indication: ALLERGY PROPHYLAXIS
     Dosage: 40 MG, UNK
     Dates: start: 20090322, end: 20090324
  16. METHYLPREDNISOLONE SODIUM SUCCINATE [Concomitant]
     Indication: PREMEDICATION
     Dosage: 250 MG, BID
     Dates: start: 20090313, end: 20090323
  17. PREDNISOLONE ACETATE [Concomitant]
     Indication: ALLERGY PROPHYLAXIS
     Dosage: 20 MG, UNK
     Dates: start: 20090325, end: 20090327
  18. PREDNISOLONE ACETATE [Concomitant]
     Indication: ALLERGY PROPHYLAXIS
     Dosage: 10 MG, UNK
     Dates: start: 20090325, end: 20090401
  19. UROMITEXAN [Concomitant]
     Indication: PROPHYLAXIS
     Dosage: UNK
     Dates: start: 20090313, end: 20090316
  20. FUROSEMIDE [Concomitant]
     Indication: CARDIOVASCULAR EVENT PROPHYLAXIS
     Dosage: UNK
     Dates: start: 20090313, end: 20090427
  21. VORICONAZOLE [Concomitant]
     Indication: INFECTION PROPHYLAXIS
     Dosage: UNK
     Dates: start: 20090313, end: 20090316
  22. LANSOPRAZOLE [Concomitant]
     Indication: PROPHYLAXIS
     Dosage: UNK
     Dates: start: 20090313, end: 20090316
  23. BACTRIM [Concomitant]
     Indication: INFECTION PROPHYLAXIS
     Dosage: UNK
     Dates: start: 20090313, end: 20090316
  24. URSODEOXYCHOLIC ACID [Concomitant]
     Indication: PROPHYLAXIS
     Dosage: UNK
     Dates: start: 20090313, end: 20090316
  25. ACICLOVIR [Concomitant]
     Indication: INFECTION PROPHYLAXIS
     Dosage: UNK
     Dates: start: 20090313, end: 20090316
  26. LIDOCAINE [Concomitant]
     Indication: STOMATITIS

REACTIONS (4)
  - Sinus bradycardia [Recovered/Resolved]
  - Chronic graft versus host disease [Unknown]
  - Staphylococcal sepsis [Recovered/Resolved]
  - Post transplant lymphoproliferative disorder [Recovered/Resolved]
